FAERS Safety Report 7436923-9 (Version None)
Quarter: 2011Q1

REPORT INFORMATION
  Report Type: 
  Country: None (occurrence: None)
  Receive Date: 20110302
  Receipt Date: 20101129
  Transmission Date: 20110831
  Serious: No
  Sender: FDA-Public Use
  Company Number: 022883

PATIENT
  Sex: Male

DRUGS (6)
  1. LIDODERM [Concomitant]
  2. LORTAB [Concomitant]
  3. ARAVA [Concomitant]
  4. FENTAL [Concomitant]
  5. ALPRAZOLAM [Concomitant]
  6. CIMZIA [Suspect]
     Indication: RHEUMATOID ARTHRITIS
     Dosage: 1 UNIT SUBCUTANEOUS
     Route: 058
     Dates: start: 20101113

REACTIONS (3)
  - COUGH [None]
  - NASOPHARYNGITIS [None]
  - MALAISE [None]
